FAERS Safety Report 4915045-2 (Version None)
Quarter: 2006Q1

REPORT INFORMATION
  Report Type: 
  Country: None (occurrence: None)
  Receive Date: 20060217
  Receipt Date: 20060208
  Transmission Date: 20060701
  Serious: Yes (Other)
  Sender: FDA-Public Use
  Company Number: GB-BRISTOL-MYERS SQUIBB COMPANY-13275185

PATIENT
  Age: 59 Year
  Sex: Female

DRUGS (7)
  1. IRBESARTAN [Suspect]
     Route: 048
     Dates: start: 20050222
  2. DOXAZOSIN [Concomitant]
     Route: 048
  3. VERAPAMIL [Concomitant]
     Route: 048
  4. INDAPAMIDE [Concomitant]
     Route: 048
  5. ROSUVASTATIN CALCIUM [Concomitant]
     Route: 048
  6. SALBUTAMOL [Concomitant]
     Dosage: 1 OR 2 PUFFS PRN
     Route: 055
  7. BECLOMETHASONE DIPROPIONATE [Concomitant]
     Route: 055

REACTIONS (1)
  - ASTHMA [None]
